FAERS Safety Report 12961471 (Version 2)
Quarter: 2017Q1

REPORT INFORMATION
  Report Type: Other
  Country: None (occurrence: NG)
  Receive Date: 20161121
  Receipt Date: 20170322
  Transmission Date: 20170428
  Serious: Yes (Other)
  Sender: FDA-Public Use
  Company Number: NG-POPULATION COUNCIL, INC.-1059854

PATIENT
  Age: 32 Year
  Sex: Female
  Weight: 88 kg

DRUGS (1)
  1. JADELLE [Suspect]
     Active Substance: LEVONORGESTREL
     Indication: CONTRACEPTION
     Route: 059

REACTIONS (2)
  - Pregnancy with implant contraceptive [None]
  - Drug ineffective [None]
